FAERS Safety Report 5399691-0 (Version None)
Quarter: 2007Q3

REPORT INFORMATION
  Report Type: 
  Country: None (occurrence: None)
  Receive Date: 20070727
  Receipt Date: 20070717
  Transmission Date: 20080115
  Serious: Yes (Death)
  Sender: FDA-Public Use
  Company Number: BR-PFIZER INC-2007060039

PATIENT
  Sex: Male

DRUGS (1)
  1. ZYVOX [Suspect]
     Indication: ENDOCARDITIS BACTERIAL
     Route: 051

REACTIONS (2)
  - DISEASE PROGRESSION [None]
  - ENDOCARDITIS BACTERIAL [None]
